FAERS Safety Report 8495374-9 (Version None)
Quarter: 2012Q3

REPORT INFORMATION
  Report Type: 
  Country: None (occurrence: None)
  Receive Date: 20120709
  Receipt Date: 20120626
  Transmission Date: 20120928
  Serious: Yes (Other)
  Sender: FDA-Public Use
  Company Number: TR-PFIZER INC-2012161227

PATIENT
  Sex: Female

DRUGS (1)
  1. PANTOPRAZOLE SODIUM [Suspect]
     Dosage: 1 DF, 1X/DAY
     Route: 048

REACTIONS (3)
  - SKIN DISCOLOURATION [None]
  - DYSPHONIA [None]
  - DYSPNOEA [None]
